FAERS Safety Report 21170878 (Version 1)
Quarter: 2022Q3

REPORT INFORMATION
  Report Type: Spontaneous
  Country: FR (occurrence: FR)
  Receive Date: 20220804
  Receipt Date: 20220804
  Transmission Date: 20221026
  Serious: Yes (Hospitalization)
  Sender: FDA-Public Use
  Company Number: None

PATIENT
  Age: 57 Year
  Sex: Male
  Weight: 59 kg

DRUGS (3)
  1. FLUOROURACIL [Suspect]
     Active Substance: FLUOROURACIL
     Indication: Squamous cell carcinoma
     Dosage: STRENGTH: 50 MG/ ML, SOLUTION FOR INFUSION, OVER 96H
     Dates: start: 20220603, end: 20220606
  2. CARBOPLATIN [Concomitant]
     Active Substance: CARBOPLATIN
     Indication: Squamous cell carcinoma
  3. ERBITUX [Concomitant]
     Active Substance: CETUXIMAB
     Indication: Squamous cell carcinoma

REACTIONS (1)
  - Paroxysmal atrioventricular block [Not Recovered/Not Resolved]

NARRATIVE: CASE EVENT DATE: 20220606
